FAERS Safety Report 20974807 (Version 1)
Quarter: 2022Q2

REPORT INFORMATION
  Report Type: Spontaneous
  Country: US (occurrence: None)
  Receive Date: 20220617
  Receipt Date: 20220617
  Transmission Date: 20220721
  Serious: Yes (Hospitalization)
  Sender: FDA-Public Use
  Company Number: None

PATIENT
  Age: 36 Year
  Sex: Female
  Weight: 83.5 kg

DRUGS (2)
  1. CARBOPLATIN [Suspect]
     Active Substance: CARBOPLATIN
     Dates: end: 20220601
  2. TAXOL [Suspect]
     Active Substance: PACLITAXEL
     Dates: end: 20220601

REACTIONS (3)
  - Abdominal pain [None]
  - Nausea [None]
  - Dehiscence [None]

NARRATIVE: CASE EVENT DATE: 20220614
